FAERS Safety Report 6011226-8 (Version None)
Quarter: 2008Q4

REPORT INFORMATION
  Report Type: 
  Country: None (occurrence: None)
  Receive Date: 20081218
  Receipt Date: 20081208
  Transmission Date: 20090506
  Serious: Yes (Hospitalization)
  Sender: FDA-Public Use
  Company Number: JP-MERCK-0812USA02677

PATIENT
  Age: 90 Year
  Sex: Female

DRUGS (10)
  1. PEPCID RPD [Suspect]
     Route: 048
  2. GENINAX [Suspect]
     Indication: BRONCHITIS
     Route: 048
     Dates: start: 20081202, end: 20081202
  3. BLOPRESS [Concomitant]
     Route: 048
  4. LANIRAPID [Concomitant]
     Route: 048
  5. CONIEL [Concomitant]
     Route: 048
  6. IFENPRODIL TARTRATE [Concomitant]
     Route: 048
  7. ROCORNAL [Concomitant]
     Route: 048
  8. TRIAZOLAM [Concomitant]
     Route: 048
  9. EURODIN [Concomitant]
     Route: 048
  10. PELEX [Concomitant]
     Route: 048
     Dates: start: 20081202

REACTIONS (1)
  - HYPERKALAEMIA [None]
